FAERS Safety Report 24169173 (Version 1)
Quarter: 2024Q3

REPORT INFORMATION
  Report Type: Spontaneous
  Country: US (occurrence: None)
  Receive Date: 20240802
  Receipt Date: 20240802
  Transmission Date: 20241016
  Serious: No
  Sender: Public
  Company Number: None

PATIENT

DRUGS (2)
  1. NEXTERONE [Suspect]
     Active Substance: AMIODARONE HYDROCHLORIDE
  2. MYXREDLIN [Suspect]
     Active Substance: INSULIN HUMAN

REACTIONS (4)
  - Intercepted product administration error [None]
  - Product storage error [None]
  - Product selection error [None]
  - Product packaging confusion [None]
